FAERS Safety Report 7795706-0 (Version None)
Quarter: 2011Q3

REPORT INFORMATION
  Report Type: 
  Country: None (occurrence: None)
  Receive Date: 20110930
  Receipt Date: 20110914
  Transmission Date: 20111222
  Serious: Yes (Hospitalization)
  Sender: FDA-Public Use
  Company Number: DSA_47683_2011

PATIENT
  Age: 75 Year
  Sex: Female

DRUGS (7)
  1. DYAZIDE [Concomitant]
  2. ALBUTEROL [Concomitant]
  3. SALSALATE [Concomitant]
  4. PENTOXIFYLLINE [Concomitant]
  5. DILTIAZEM HCL [Suspect]
     Indication: HYPERTENSION
     Dosage: 180 MG, QD, ORAL, (1500 MG/PER DAY)30 MG QID, ORAL (UNKNOWN HIGH DOSE ORAL)
     Route: 048
  6. IPRATROPIUM BROMIDE [Concomitant]
  7. GLYCERYL TRINITRATE [Concomitant]

REACTIONS (5)
  - INTENTIONAL OVERDOSE [None]
  - DEMENTIA [None]
  - CONFUSIONAL STATE [None]
  - SOMNOLENCE [None]
  - MYOCLONUS [None]
